FAERS Safety Report 9828507 (Version 2)
Quarter: 2014Q2

REPORT INFORMATION
  Report Type: Spontaneous
  Country: GB (occurrence: GB)
  Receive Date: 20140117
  Receipt Date: 20140509
  Transmission Date: 20141212
  Serious: Yes (Other)
  Sender: FDA-Public Use
  Company Number: GB-ABBVIE-14P-167-1190060-00

PATIENT
  Age: 47 Year
  Sex: Female

DRUGS (5)
  1. HUMIRA [Suspect]
     Indication: RHEUMATOID ARTHRITIS
     Route: 058
     Dates: start: 200711, end: 201209
  2. HUMIRA [Suspect]
     Indication: PROSTATIC SPECIFIC ANTIGEN
     Route: 058
     Dates: start: 20140107
  3. HUMIRA [Suspect]
     Indication: PYODERMA GANGRENOSUM
  4. THYROXINE [Concomitant]
     Indication: PRODUCT USED FOR UNKNOWN INDICATION
     Dosage: OD
     Route: 048
     Dates: start: 1996
  5. AMITRIPTYLINE [Concomitant]
     Indication: PRODUCT USED FOR UNKNOWN INDICATION
     Dosage: OD
     Route: 048
     Dates: start: 201301

REACTIONS (7)
  - Hypoaesthesia [Unknown]
  - Multiple sclerosis [Unknown]
  - Paraesthesia [Unknown]
  - Optic neuritis [Unknown]
  - Blindness unilateral [Unknown]
  - Skin ulcer [Unknown]
  - Multiple sclerosis [Recovering/Resolving]
